FAERS Safety Report 8779023 (Version 1)
Quarter: 2012Q4

REPORT INFORMATION
  Report Type: 
  Country: CN (occurrence: CN)
  Receive Date: 20120912
  Receipt Date: 20120912
  Transmission Date: 20130627
  Serious: Yes (Hospitalization)
  Sender: FDA-Public Use
  Company Number: CN-PFIZER INC-2012222846

PATIENT
  Age: 61 Year
  Sex: Female

DRUGS (1)
  1. CORDARONE [Suspect]
     Indication: ATRIAL FIBRILLATION
     Dosage: 100 mg 1 tablet once daily
     Route: 048
     Dates: start: 20100222, end: 20100223

REACTIONS (1)
  - Dermatitis [Recovering/Resolving]
